FAERS Safety Report 4352526-7 (Version None)
Quarter: 2004Q2

REPORT INFORMATION
  Report Type: 
  Country: None (occurrence: None)
  Receive Date: 20040428
  Receipt Date: 20040413
  Transmission Date: 20050107
  Serious: Yes (Hospitalization)
  Sender: FDA-Public Use
  Company Number: 2004SE00572

PATIENT
  Age: 90 Year
  Sex: Female

DRUGS (8)
  1. LOSEC [Suspect]
     Indication: OESOPHAGITIS
     Dates: end: 20031001
  2. ASAFLOW [Concomitant]
  3. FOSAMAX [Concomitant]
  4. PERSANTIN [Concomitant]
  5. FLUDEX [Concomitant]
  6. ZESTRIL [Concomitant]
  7. SELOZOK [Concomitant]
  8. PREMARIN [Concomitant]

REACTIONS (4)
  - ARTHRALGIA [None]
  - CUTANEOUS VASCULITIS [None]
  - GLOMERULONEPHRITIS [None]
  - HENOCH-SCHONLEIN PURPURA [None]
